FAERS Safety Report 6318215-4 (Version None)
Quarter: 2009Q3

REPORT INFORMATION
  Report Type: 
  Country: None (occurrence: None)
  Receive Date: 20090821
  Receipt Date: 20090818
  Transmission Date: 20100115
  Serious: Yes (Hospitalization)
  Sender: FDA-Public Use
  Company Number: B0589678A

PATIENT
  Age: 25 Year
  Sex: Male

DRUGS (2)
  1. AUGMENTIN '125' [Suspect]
     Indication: PROPHYLAXIS
     Route: 048
     Dates: start: 20090809
  2. BLOOD TRANSFUSION [Concomitant]

REACTIONS (2)
  - GASTROENTERITIS [None]
  - PRODUCT QUALITY ISSUE [None]
